FAERS Safety Report 6061528-4 (Version None)
Quarter: 2009Q1

REPORT INFORMATION
  Report Type: 
  Country: None (occurrence: None)
  Receive Date: 20090202
  Receipt Date: 20090121
  Transmission Date: 20090719
  Serious: Yes (Death, Hospitalization)
  Sender: FDA-Public Use
  Company Number: CN-ROCHE-609241

PATIENT
  Age: 73 Year
  Sex: Female
  Weight: 42 kg

DRUGS (1)
  1. XELODA [Suspect]
     Route: 048
     Dates: start: 20081026, end: 20081105

REACTIONS (15)
  - AGEUSIA [None]
  - ANGINA PECTORIS [None]
  - BALANCE DISORDER [None]
  - BONE MARROW FAILURE [None]
  - CACHEXIA [None]
  - CARDIAC DISORDER [None]
  - DECREASED APPETITE [None]
  - DIARRHOEA [None]
  - INCONTINENCE [None]
  - INCORRECT DOSE ADMINISTERED [None]
  - MOUTH ULCERATION [None]
  - PALMAR-PLANTAR ERYTHRODYSAESTHESIA SYNDROME [None]
  - PIGMENTATION DISORDER [None]
  - PYREXIA [None]
  - SKIN FISSURES [None]
